FAERS Safety Report 5406713-7 (Version None)
Quarter: 2007Q3

REPORT INFORMATION
  Report Type: 
  Country: None (occurrence: None)
  Receive Date: 20070803
  Receipt Date: 20070803
  Transmission Date: 20080115
  Serious: No
  Sender: FDA-Public Use
  Company Number: None

PATIENT
  Age: 53 Year
  Sex: Female
  Weight: 79.3795 kg

DRUGS (4)
  1. GAMMA GLOBULIN UNKNOWN BATCH #49281-915 CONNAUGHT [Suspect]
     Indication: FOREIGN TRAVEL
     Dosage: GAMMA GLOBULIN ONCE
     Dates: start: 19901003, end: 19901003
  2. PROTOPIC [Concomitant]
  3. UV RAYS [Concomitant]
  4. ANTIDEPRESSENTS [Concomitant]

REACTIONS (4)
  - PHARMACEUTICAL PRODUCT COMPLAINT [None]
  - PRURITUS [None]
  - RASH [None]
  - SKIN ULCER [None]
